FAERS Safety Report 17908231 (Version 1)
Quarter: 2020Q2

REPORT INFORMATION
  Report Type: Other
  Country: CA (occurrence: CA)
  Receive Date: 20200617
  Receipt Date: 20200617
  Transmission Date: 20200714
  Serious: Yes (Other)
  Sender: FDA-Public Use
  Company Number: CA-BECTON DICKINSON-2020BDN00165

PATIENT
  Age: 42 Year
  Sex: Female
  Weight: 81 kg

DRUGS (23)
  1. SIMPONI [Suspect]
     Active Substance: GOLIMUMAB
     Route: 058
  2. ARAVA [Concomitant]
     Active Substance: LEFLUNOMIDE
  3. REACTINE [Concomitant]
  4. VITAMIN C [Concomitant]
     Active Substance: ASCORBIC ACID
  5. LEFLUNOMIDE. [Suspect]
     Active Substance: LEFLUNOMIDE
  6. CHLORHEXIDINE [Suspect]
     Active Substance: CHLORHEXIDINE
  7. CIMZIA [Suspect]
     Active Substance: CERTOLIZUMAB PEGOL
     Indication: RHEUMATOID ARTHRITIS
     Route: 058
  8. IBUPROFEN. [Concomitant]
     Active Substance: IBUPROFEN
  9. METHOTREXATE. [Suspect]
     Active Substance: METHOTREXATE
  10. DESOGESTREL;ETHINYL ESTRADIOL [Concomitant]
     Active Substance: DESOGESTREL\ETHINYL ESTRADIOL
  11. PANTOPRAZOLE [Concomitant]
     Active Substance: PANTOPRAZOLE
  12. TYLENOL [Concomitant]
     Active Substance: ACETAMINOPHEN
  13. HYDROXYCHLOROQUINE [Concomitant]
     Active Substance: HYDROXYCHLOROQUINE
  14. PREDNISONE. [Concomitant]
     Active Substance: PREDNISONE
  15. ACTEMRA [Suspect]
     Active Substance: TOCILIZUMAB
  16. ORENCIA [Suspect]
     Active Substance: ABATACEPT
  17. OXYCODONE [Suspect]
     Active Substance: OXYCODONE
  18. OXYCODONE TEREPHTHALATE [Suspect]
     Active Substance: OXYCODONE TEREPHTHALATE
  19. ERGOCALCIFEROL. [Concomitant]
     Active Substance: ERGOCALCIFEROL
  20. VENTOLIN [Concomitant]
     Active Substance: ALBUTEROL SULFATE
  21. ZOPICLONE [Concomitant]
     Active Substance: ZOPICLONE
  22. ACETAMINOPHEN. [Suspect]
     Active Substance: ACETAMINOPHEN
  23. ENBREL [Suspect]
     Active Substance: ETANERCEPT
     Route: 058

REACTIONS (20)
  - Abdominal pain upper [Unknown]
  - Asthenia [Unknown]
  - Headache [Unknown]
  - Lower respiratory tract infection [Unknown]
  - Pain [Unknown]
  - Peripheral swelling [Unknown]
  - Sinusitis [Unknown]
  - Body temperature increased [Unknown]
  - Insomnia [Unknown]
  - Joint swelling [Unknown]
  - Diarrhoea [Unknown]
  - Muscle spasticity [Unknown]
  - Rash [Unknown]
  - Urticaria [Unknown]
  - Vomiting [Unknown]
  - Ear pain [Unknown]
  - Respiratory disorder [Unknown]
  - Back pain [Unknown]
  - Night sweats [Unknown]
  - Pruritus [Unknown]
